FAERS Safety Report 19059262 (Version 1)
Quarter: 2021Q1

REPORT INFORMATION
  Report Type: Spontaneous
  Country: US (occurrence: US)
  Receive Date: 20210326
  Receipt Date: 20210326
  Transmission Date: 20210420
  Serious: No
  Sender: FDA-Public Use
  Company Number: US-STRIDES ARCOLAB LIMITED-2021SP002556

PATIENT
  Age: 45 Year
  Sex: Male

DRUGS (4)
  1. PREDNISOLONE. [Suspect]
     Active Substance: PREDNISOLONE
     Dosage: 10 MILLIGRAM, PER DAY IN THE THIRD MONTH
     Route: 065
  2. PREDNISOLONE. [Suspect]
     Active Substance: PREDNISOLONE
     Indication: FACIOSCAPULOHUMERAL MUSCULAR DYSTROPHY
     Dosage: 40 MILLIGRAM, PER DAY IN THE FIRST MONTH
     Route: 065
  3. TACROLIMUS. [Suspect]
     Active Substance: TACROLIMUS
     Indication: FACIOSCAPULOHUMERAL MUSCULAR DYSTROPHY
     Dosage: 2.5?3 MILLIGRAM, TWICE PER DAY WITH A GOAL TROUGH OF 4 NG/DL
     Route: 065
  4. PREDNISOLONE. [Suspect]
     Active Substance: PREDNISOLONE
     Dosage: 20 MILLIGRAM, PER DAY IN THE SECOND MONTH
     Route: 065

REACTIONS (1)
  - Off label use [Unknown]
